FAERS Safety Report 4282259-7 (Version None)
Quarter: 2004Q1

REPORT INFORMATION
  Report Type: 
  Country: None (occurrence: None)
  Receive Date: 20040112
  Receipt Date: 20030225
  Transmission Date: 20041129
  Serious: Yes (Death, Hospitalization, Disabling)
  Sender: FDA-Public Use
  Company Number: NSADSS2003003360

PATIENT
  Age: 61 Year
  Sex: Male
  Weight: 136 kg

DRUGS (7)
  1. REOPRO [Suspect]
     Indication: CORONARY ANGIOPLASTY
     Dosage: 1 IN 1 AS NECESSARY, INTRAVENOUS DRIP
     Route: 041
     Dates: start: 20030103
  2. INTEGRILIN [Concomitant]
  3. HEPARIN [Concomitant]
  4. ENOXAPARIN SODIUM [Concomitant]
  5. ACETYLSALICYLIC ACID SRT [Concomitant]
  6. CLOPIDOGREL BISULFATE [Concomitant]
  7. EPTIFIBATIDE (EPTIFIBATIDE) [Concomitant]

REACTIONS (1)
  - HAEMORRHAGE INTRACRANIAL [None]
